FAERS Safety Report 12547689 (Version 2)
Quarter: 2016Q3

REPORT INFORMATION
  Report Type: Spontaneous
  Country: US (occurrence: US)
  Receive Date: 20160712
  Receipt Date: 20160802
  Transmission Date: 20161109
  Serious: No
  Sender: FDA-Public Use
  Company Number: US-ELI_LILLY_AND_COMPANY-US201606011062

PATIENT
  Sex: Male

DRUGS (1)
  1. TERIPARATIDE [Suspect]
     Active Substance: TERIPARATIDE
     Indication: HYPOGONADISM
     Dosage: UNK, UNKNOWN
     Route: 065
     Dates: start: 201605

REACTIONS (2)
  - Off label use [Unknown]
  - Migraine [Unknown]
